FAERS Safety Report 9604441 (Version 2)
Quarter: 2014Q1

REPORT INFORMATION
  Report Type: Spontaneous
  Country: US (occurrence: US)
  Receive Date: 20131008
  Receipt Date: 20140307
  Transmission Date: 20141002
  Serious: Yes (Other)
  Sender: FDA-Public Use
  Company Number: US-ASTRAZENECA-2013SE72878

PATIENT
  Age: 61 Year
  Sex: Female
  Weight: 60.8 kg

DRUGS (5)
  1. RHINOCORT AQUA [Suspect]
     Indication: RHINITIS ALLERGIC
     Dosage: 32 MG 1 TO 2 SPRAY, DAILY
     Route: 045
     Dates: end: 20130903
  2. RHINOCORT AQUA [Suspect]
     Indication: RHINITIS ALLERGIC
     Dosage: 1 TO 2 SPRAY PER NOSTRIL, DAILY
     Route: 045
  3. TRIAMCINOLONE [Suspect]
     Indication: MULTIPLE ALLERGIES
     Route: 065
  4. ZANTAC [Concomitant]
     Indication: DYSPEPSIA
     Route: 048
  5. ZANTAC [Concomitant]
     Indication: DYSPEPSIA
     Route: 048

REACTIONS (5)
  - Retinal tear [Unknown]
  - Sinus headache [Recovered/Resolved]
  - Body height decreased [Unknown]
  - Epistaxis [Recovered/Resolved]
  - Intentional drug misuse [Recovered/Resolved]
